FAERS Safety Report 23465428 (Version 1)
Quarter: 2024Q1

REPORT INFORMATION
  Report Type: Spontaneous
  Country: US (occurrence: None)
  Receive Date: 20240131
  Receipt Date: 20240131
  Transmission Date: 20240410
  Serious: Yes (Other)
  Sender: FDA-Public Use
  Company Number: None

PATIENT
  Age: 56 Year
  Sex: Female

DRUGS (20)
  1. AMBRISENTAN [Suspect]
     Active Substance: AMBRISENTAN
     Indication: Pulmonary arterial hypertension
     Dosage: FREQUENCY : DAILY;?
     Route: 048
     Dates: start: 20191111
  2. TADALAFIL [Concomitant]
     Active Substance: TADALAFIL
  3. SELEXIPAG [Concomitant]
     Active Substance: SELEXIPAG
  4. alvesco HFA [Concomitant]
  5. TOPIRAMATE [Concomitant]
     Active Substance: TOPIRAMATE
  6. ABILIFY [Concomitant]
     Active Substance: ARIPIPRAZOLE
  7. LEVOTHYROXINE [Concomitant]
     Active Substance: LEVOTHYROXINE\LEVOTHYROXINE SODIUM
  8. POTASSIUM CHLORIDE [Concomitant]
     Active Substance: POTASSIUM CHLORIDE
  9. OMEPRAZOLE [Concomitant]
     Active Substance: OMEPRAZOLE
  10. REQUIP [Concomitant]
     Active Substance: ROPINIROLE HYDROCHLORIDE
  11. SPIRONOLACTONE [Concomitant]
     Active Substance: SPIRONOLACTONE
  12. GLIPIZIDE [Concomitant]
     Active Substance: GLIPIZIDE
  13. GABAPENTIN [Concomitant]
  14. TORSEMIDE [Concomitant]
     Active Substance: TORSEMIDE
  15. LORAZEPAM [Concomitant]
     Active Substance: LORAZEPAM
  16. THIAMINE [Concomitant]
     Active Substance: THIAMINE
  17. CETIRIZINE [Concomitant]
  18. diclofenac to gel [Concomitant]
  19. lidex top oint [Concomitant]
  20. narcon [Concomitant]

REACTIONS (2)
  - Influenza [None]
  - Acute respiratory failure [None]

NARRATIVE: CASE EVENT DATE: 20231229
